FAERS Safety Report 17857614 (Version 4)
Quarter: 2025Q3

REPORT INFORMATION
  Report Type: Report from Study
  Country: EU (occurrence: EU)
  Receive Date: 20200604
  Receipt Date: 20250718
  Transmission Date: 20251020
  Serious: Yes (Other)
  Sender: ROCHE
  Company Number: EU-GILEAD-2020-0454717

PATIENT
  Age: 68 Year
  Sex: Male
  Weight: 88.9 kg

DRUGS (15)
  1. TOCILIZUMAB [Suspect]
     Active Substance: TOCILIZUMAB
     Indication: Cytokine release syndrome
     Dosage: 699.2 MG, QD
     Route: 042
     Dates: end: 20200308
  2. CYCLOPHOSPHAMIDE [Suspect]
     Active Substance: CYCLOPHOSPHAMIDE
     Indication: Bone marrow conditioning regimen
     Dosage: 1060 MG, QD
     Route: 042
     Dates: start: 20200227, end: 20200229
  3. ACETAMINOPHEN [Suspect]
     Active Substance: ACETAMINOPHEN
     Indication: Pyrexia
     Route: 048
     Dates: start: 20200310
  4. ACETAMINOPHEN [Suspect]
     Active Substance: ACETAMINOPHEN
     Route: 048
     Dates: start: 20200303, end: 20200310
  5. FLUDARABINE [Suspect]
     Active Substance: FLUDARABINE PHOSPHATE
     Indication: Bone marrow conditioning regimen
     Dosage: 32.5 MG, QD
     Route: 042
     Dates: start: 20200227, end: 20200229
  6. MESNA [Suspect]
     Active Substance: MESNA
     Indication: Prophylaxis
     Dosage: 400 MG, TID?PROPHYLAXIS AGAINST HEMORRHAGIC CYSTITIS
     Route: 042
     Dates: start: 20200227, end: 20200301
  7. DEXAMETHASONE [Suspect]
     Active Substance: DEXAMETHASONE
     Indication: Chemotherapy
     Dosage: 10 MG, QD
     Route: 042
     Dates: start: 20200311, end: 20200314
  8. DEXAMETHASONE [Suspect]
     Active Substance: DEXAMETHASONE
     Dosage: 10 MG, QD
     Route: 042
     Dates: start: 20200114, end: 20200117
  9. DEXAMETHASONE [Suspect]
     Active Substance: DEXAMETHASONE
     Dosage: 10 MG, QD
     Route: 042
     Dates: start: 20200308, end: 20200308
  10. AXICABTAGENE CILOLEUCEL [Suspect]
     Active Substance: AXICABTAGENE CILOLEUCEL
     Indication: Diffuse large B-cell lymphoma
     Route: 042
     Dates: start: 20200303
  11. LISINOPRIL [Concomitant]
     Active Substance: LISINOPRIL
     Indication: Hypertension
     Route: 048
     Dates: start: 20200227, end: 20200227
  12. POTASSIUM CHLORIDE\SODIUM CHLORIDE [Concomitant]
     Active Substance: POTASSIUM CHLORIDE\SODIUM CHLORIDE
     Dates: start: 20200309, end: 20200309
  13. MAGNESIUMHYDROXIDE [Concomitant]
     Indication: Abdominal pain upper
     Dosage: 724 MG, BID
     Route: 048
     Dates: start: 20100510
  14. OMEPRAZOLE [Concomitant]
     Active Substance: OMEPRAZOLE
     Dosage: 40 MG, QD
     Route: 048
     Dates: start: 20200228
  15. HYDROCHLOROTHIAZIDE [Concomitant]
     Active Substance: HYDROCHLOROTHIAZIDE
     Indication: Diuretic therapy
     Route: 048
     Dates: start: 20200227

REACTIONS (11)
  - Hypertension [Recovered/Resolved]
  - Diarrhoea [Recovered/Resolved]
  - Neurotoxicity [Recovered/Resolved]
  - Dysgeusia [Recovered/Resolved]
  - Cytokine release syndrome [Recovered/Resolved]
  - Hyperhidrosis [Recovered/Resolved]
  - Atrial fibrillation [Recovered/Resolved with Sequelae]
  - Neutrophil count decreased [Recovered/Resolved]
  - Headache [Recovered/Resolved]
  - Abdominal pain upper [Not Recovered/Not Resolved]
  - Hepatic enzyme increased [Recovered/Resolved]

NARRATIVE: CASE EVENT DATE: 20200303
